FAERS Safety Report 6221372-1 (Version None)
Quarter: 2009Q2

REPORT INFORMATION
  Report Type: 
  Country: None (occurrence: None)
  Receive Date: 20090610
  Receipt Date: 20090610
  Transmission Date: 20091009
  Serious: Yes (Hospitalization)
  Sender: FDA-Public Use
  Company Number: US-ABBOTT-09P-163-0575990-00

PATIENT
  Sex: Female
  Weight: 59.02 kg

DRUGS (25)
  1. HUMIRA [Suspect]
     Indication: COLITIS ULCERATIVE
     Route: 058
     Dates: start: 20090309, end: 20090511
  2. ALENDRONATE [Concomitant]
     Indication: OSTEOPOROSIS
  3. CALCET PLUS VITAMIN D [Concomitant]
     Indication: RESTLESS LEGS SYNDROME
  4. CENTRUM SILVER [Concomitant]
     Indication: DRUG USE FOR UNKNOWN INDICATION
  5. VITAMIN E [Concomitant]
     Indication: DRUG USE FOR UNKNOWN INDICATION
  6. CALCIUM WITH VITAMIN D [Concomitant]
     Indication: OSTEOPOROSIS
  7. BUTALBITAL [Concomitant]
     Indication: MIGRAINE
  8. PREVACID [Concomitant]
     Indication: GASTROOESOPHAGEAL REFLUX PROPHYLAXIS
  9. ASACOL [Concomitant]
     Indication: COLITIS ULCERATIVE
  10. AZATIOPRIN [Concomitant]
     Indication: COLITIS ULCERATIVE
  11. SINGULAIR [Concomitant]
     Indication: ASTHMA
  12. FORADIL [Concomitant]
     Indication: ASTHMA
  13. FLONASE [Concomitant]
     Indication: ASTHMA
  14. ALPHAGAN [Concomitant]
     Indication: GLAUCOMA
     Dosage: 0.15%/15ML, 1DROP IN EACH EYE BID
  15. LUMIGAN [Concomitant]
     Indication: GLAUCOMA
     Dosage: 0.03%/7.5 ML ONE DROP IN EACH EYE DAILY
  16. DARBEPAETIN ALPHA (ARANEST) [Concomitant]
     Indication: RED BLOOD CELL COUNT DECREASED
     Dosage: IF RBC IS BELOW 11.5, 1INJ EVERY 2 WEEKS
  17. PLAVIX [Concomitant]
     Indication: CORONARY ARTERY OCCLUSION
  18. PLAVIX [Concomitant]
     Indication: CORONARY ARTERIAL STENT INSERTION
  19. LISINOPRIL [Concomitant]
     Indication: HYPERTENSION
  20. METOPROLOL SUCCINATE [Concomitant]
     Indication: HYPERTENSION
  21. METOPROLOL SUCCINATE [Concomitant]
     Dates: start: 20090523
  22. VERAPAMIL [Concomitant]
     Indication: CARDIOVASCULAR DISORDER
  23. ASPIRIN [Concomitant]
     Indication: CARDIOVASCULAR DISORDER
  24. LIPITOR [Concomitant]
     Indication: BLOOD CHOLESTEROL INCREASED
  25. SPIRONOLACTONE [Concomitant]
     Indication: DRUG USE FOR UNKNOWN INDICATION

REACTIONS (10)
  - ASTHENIA [None]
  - BLOOD SODIUM DECREASED [None]
  - DEHYDRATION [None]
  - INFLUENZA [None]
  - LUNG DISORDER [None]
  - PAIN [None]
  - PNEUMONIA [None]
  - PYREXIA [None]
  - SEPSIS [None]
  - URINARY TRACT INFECTION [None]
